FAERS Safety Report 6704723-0 (Version None)
Quarter: 2010Q2

REPORT INFORMATION
  Report Type: 
  Country: None (occurrence: None)
  Receive Date: 20100430
  Receipt Date: 20100422
  Transmission Date: 20101027
  Serious: Yes (Hospitalization)
  Sender: FDA-Public Use
  Company Number: DE-ABBOTT-09P-062-0585907-00

PATIENT
  Age: 43 Year
  Sex: Female
  Weight: 75.3 kg

DRUGS (5)
  1. HUMIRA [Suspect]
     Indication: PSORIASIS
     Route: 058
     Dates: start: 20080808, end: 20080812
  2. HUMIRA [Suspect]
     Route: 058
     Dates: start: 20080812, end: 20090129
  3. MINISISTON [Suspect]
     Indication: CONTRACEPTION
     Dosage: 245 (DOSAGE FORM)
     Route: 048
     Dates: start: 20000101, end: 20090129
  4. MINISISTON [Concomitant]
     Route: 048
     Dates: start: 20000101, end: 20090129
  5. MONOEMBOLEX 0.3 [Concomitant]
     Indication: DRUG USE FOR UNKNOWN INDICATION

REACTIONS (1)
  - HEPATITIS [None]
